FAERS Safety Report 9638381 (Version 2)
Quarter: 2013Q4

REPORT INFORMATION
  Report Type: Spontaneous
  Country: CN (occurrence: CN)
  Receive Date: 20131022
  Receipt Date: 20131113
  Transmission Date: 20140711
  Serious: Yes (Hospitalization)
  Sender: FDA-Public Use
  Company Number: CN-GLAXOSMITHKLINE-B0933179A

PATIENT
  Age: 10 Year
  Sex: Male
  Weight: 34 kg

DRUGS (5)
  1. LAMICTAL [Suspect]
     Indication: EPILEPSY
     Dosage: 150MG PER DAY
     Route: 048
     Dates: start: 201110, end: 201111
  2. LEVETIRACETAM [Concomitant]
     Indication: EPILEPSY
     Dates: start: 201110
  3. TOPAMAX [Concomitant]
     Indication: EPILEPSY
  4. DEPAKINE [Concomitant]
     Indication: EPILEPSY
  5. OXCARBAZEPINE [Concomitant]
     Indication: EPILEPSY

REACTIONS (32)
  - Erythema multiforme [Recovering/Resolving]
  - Rash [Unknown]
  - Dermatitis allergic [Unknown]
  - Epilepsy [Unknown]
  - Ganglioglioma [Unknown]
  - Drug eruption [Unknown]
  - Erythema [Unknown]
  - Oral mucosal erythema [Unknown]
  - Cheilitis [Unknown]
  - Oedema mouth [Unknown]
  - Lip swelling [Unknown]
  - Conjunctival hyperaemia [Unknown]
  - Eye swelling [Unknown]
  - Eye discharge [Unknown]
  - Dyspnoea [Unknown]
  - Nasal disorder [Unknown]
  - Sneezing [Unknown]
  - Blister [Unknown]
  - Pruritus [Unknown]
  - Mouth ulceration [Unknown]
  - Pyrexia [Unknown]
  - Skin discolouration [Unknown]
  - Skin depigmentation [Unknown]
  - Lymphadenopathy [Unknown]
  - Swelling face [Unknown]
  - Eyelid oedema [Unknown]
  - Flushing [Unknown]
  - Rash erythematous [Unknown]
  - Convulsion [Unknown]
  - Staring [Unknown]
  - Scab [Unknown]
  - Skin exfoliation [Unknown]
